FAERS Safety Report 14779743 (Version 1)
Quarter: 2018Q2

REPORT INFORMATION
  Report Type: Report from Study
  Country: CH (occurrence: CH)
  Receive Date: 20180419
  Receipt Date: 20180419
  Transmission Date: 20180711
  Serious: Yes (Death)
  Sender: FDA-Public Use
  Company Number: CH-TEVA-2018-CH-882038

PATIENT
  Age: 15 Year

DRUGS (4)
  1. PETHIDINE [Suspect]
     Active Substance: MEPERIDINE
     Indication: PAIN
     Route: 058
  2. METAMIZOLE [Suspect]
     Active Substance: METAMIZOLE
     Indication: PAIN
     Route: 058
  3. TRAMADOL. [Suspect]
     Active Substance: TRAMADOL
     Indication: PAIN
     Route: 058
  4. METAMIZOLE [Suspect]
     Active Substance: METAMIZOLE
     Route: 042

REACTIONS (3)
  - Pulmonary oedema [Fatal]
  - Overdose [Fatal]
  - Respiratory depression [Fatal]
